FAERS Safety Report 23969759 (Version 1)
Quarter: 2024Q2

REPORT INFORMATION
  Report Type: Spontaneous
  Country: FR (occurrence: FR)
  Receive Date: 20240613
  Receipt Date: 20240613
  Transmission Date: 20240717
  Serious: Yes (Hospitalization, Other)
  Sender: FDA-Public Use
  Company Number: None

PATIENT
  Age: 78 Year
  Sex: Male
  Weight: 73 kg

DRUGS (2)
  1. LOVENOX [Suspect]
     Active Substance: ENOXAPARIN SODIUM
     Indication: Atrial fibrillation
     Dosage: 8000 IU, BID
     Route: 058
     Dates: start: 20240404, end: 20240412
  2. HEPARIN [Suspect]
     Active Substance: HEPARIN SODIUM
     Indication: Mitral valve replacement
     Dosage: UNK
     Route: 042
     Dates: start: 20240404, end: 20240404

REACTIONS (2)
  - Transient ischaemic attack [Recovered/Resolved]
  - Heparin-induced thrombocytopenia [Recovered/Resolved]

NARRATIVE: CASE EVENT DATE: 20240410
